FAERS Safety Report 8283068-4 (Version None)
Quarter: 2012Q1

REPORT INFORMATION
  Report Type: 
  Country: None (occurrence: None)
  Receive Date: 20120326
  Receipt Date: 20120319
  Transmission Date: 20120608
  Serious: Yes (Other)
  Sender: FDA-Public Use
  Company Number: 2012031655

PATIENT
  Sex: Female

DRUGS (1)
  1. HIZENTRA [Suspect]
     Indication: HYPOGAMMAGLOBULINAEMIA
     Dosage: 4 G 2X/WEEK SUBCUTANEOUS
     Route: 058
     Dates: start: 20110802

REACTIONS (11)
  - STARING [None]
  - EYE MOVEMENT DISORDER [None]
  - FACIAL SPASM [None]
  - MENTAL STATUS CHANGES [None]
  - LOSS OF CONSCIOUSNESS [None]
  - FATIGUE [None]
  - HYPOTONIA [None]
  - DISORIENTATION [None]
  - DYSTONIA [None]
  - WRONG TECHNIQUE IN DRUG USAGE PROCESS [None]
  - INFUSION RELATED REACTION [None]
